FAERS Safety Report 6583018-2 (Version None)
Quarter: 2010Q1

REPORT INFORMATION
  Report Type: 
  Country: None (occurrence: None)
  Receive Date: 20100216
  Receipt Date: 20100209
  Transmission Date: 20100710
  Serious: Yes (Other)
  Sender: FDA-Public Use
  Company Number: CN-ROCHE-662302

PATIENT
  Age: 75 Year
  Sex: Female
  Weight: 40 kg

DRUGS (4)
  1. XELODA [Suspect]
     Indication: COLON CANCER
     Dosage: IN EVERY CYCLE, PATIENT TOOK THIS DRUG FOR 14 DAYS CONTINUOUSLY, AND HAD 3 DAYS OF REST.
     Route: 048
     Dates: start: 20090903, end: 20090906
  2. XELODA [Suspect]
     Dosage: IN EVERY CYCLE, PATIENT TOOK THIS DRUG FOR 14 DAYS CONTINUOUSLY, AND HAD 3 DAYS OF REST.
     Route: 048
     Dates: start: 20091013
  3. CHINESE MEDICINE NOS [Suspect]
     Dosage: BRAND NAME AS ^JIN LONG CAPSULE^.
     Route: 048
     Dates: start: 20091025, end: 20091101
  4. CHINESE MEDICINE NOS [Suspect]
     Dosage: BRAND NAME AS ^JIN LONG CAPSULE^.
     Route: 048
     Dates: start: 20100207

REACTIONS (6)
  - ABDOMINAL DISTENSION [None]
  - ASTHENIA [None]
  - DIARRHOEA [None]
  - OVARIAN NEOPLASM [None]
  - UTERINE HAEMORRHAGE [None]
  - VAGINAL DISCHARGE [None]
